FAERS Safety Report 7482706-3 (Version None)
Quarter: 2011Q2

REPORT INFORMATION
  Report Type: 
  Country: None (occurrence: None)
  Receive Date: 20110516
  Receipt Date: 20110509
  Transmission Date: 20111010
  Serious: Yes (Other)
  Sender: FDA-Public Use
  Company Number: US-CEPHALON-2011000734

PATIENT
  Sex: Male
  Weight: 136 kg

DRUGS (4)
  1. FENOFIBRATE [Concomitant]
     Dates: start: 20100609
  2. SYNTHROID [Concomitant]
     Dates: start: 20100609
  3. CLARITIN [Concomitant]
     Dates: start: 20100609
  4. NUVIGIL [Suspect]
     Indication: SLEEP APNOEA SYNDROME
     Route: 048
     Dates: start: 20100609, end: 20101201

REACTIONS (7)
  - ACROCHORDON [None]
  - PAIN [None]
  - RASH PRURITIC [None]
  - RASH [None]
  - SKIN PAPILLOMA [None]
  - IMMUNE SYSTEM DISORDER [None]
  - GRANULOMA ANNULARE [None]
